FAERS Safety Report 23838494 (Version 3)
Quarter: 2024Q3

REPORT INFORMATION
  Report Type: Spontaneous
  Country: US (occurrence: US)
  Receive Date: 20240509
  Receipt Date: 20240715
  Transmission Date: 20241016
  Serious: Yes (Other)
  Sender: PFIZER
  Company Number: US-PFIZER INC-202400103915

PATIENT
  Age: 82 Year
  Sex: Female

DRUGS (1)
  1. VELSIPITY [Suspect]
     Active Substance: ETRASIMOD ARGININE
     Dosage: 2 MG

REACTIONS (7)
  - Colitis ulcerative [Unknown]
  - Diabetes mellitus [Unknown]
  - Nephropathy [Unknown]
  - Dehydration [Unknown]
  - Diarrhoea [Unknown]
  - Hypertension [Unknown]
  - Blood cholesterol increased [Unknown]
